FAERS Safety Report 4696888-X (Version None)
Quarter: 2005Q2

REPORT INFORMATION
  Report Type: 
  Country: None (occurrence: None)
  Receive Date: 20050124
  Receipt Date: 20050124
  Transmission Date: 20051028
  Serious: Yes (Other)
  Sender: FDA-Public Use
  Company Number: None

PATIENT
  Sex: Female
  Weight: 49.6 kg

DRUGS (3)
  1. GENERIC PERCOCET 5/325 (VARIOUS) [Suspect]
     Indication: ARTHRITIS
     Dosage: 1 TAB PO Q 4 HRS PRN
     Route: 048
     Dates: start: 20020101
  2. GENERIC PERCOCET 5/325 (VARIOUS) [Suspect]
     Indication: FIBROMYALGIA
     Dosage: 1 TAB PO Q 4 HRS PRN
     Route: 048
     Dates: start: 20020101
  3. GENERIC PERCOCET 5/325 (VARIOUS) [Suspect]
     Indication: HEADACHE
     Dosage: 1 TAB PO Q 4 HRS PRN
     Route: 048
     Dates: start: 20020101

REACTIONS (1)
  - ABDOMINAL PAIN UPPER [None]
